FAERS Safety Report 8144033-0 (Version None)
Quarter: 2012Q1

REPORT INFORMATION
  Report Type: 
  Country: None (occurrence: None)
  Receive Date: 20120217
  Receipt Date: 20120217
  Transmission Date: 20120608
  Serious: Yes (Other)
  Sender: FDA-Public Use
  Company Number: None

PATIENT
  Age: 28 Year
  Sex: Female
  Weight: 53.523 kg

DRUGS (1)
  1. LO/OVRAL [Suspect]
     Indication: CONTRACEPTION
     Route: 048

REACTIONS (3)
  - POOR QUALITY DRUG ADMINISTERED [None]
  - PRODUCT QUALITY ISSUE [None]
  - PREGNANCY ON ORAL CONTRACEPTIVE [None]
